FAERS Safety Report 19799757 (Version 1)
Quarter: 2021Q3

REPORT INFORMATION
  Report Type: Spontaneous
  Country: US (occurrence: US)
  Receive Date: 20210907
  Receipt Date: 20210907
  Transmission Date: 20211014
  Serious: Yes (Hospitalization)
  Sender: FDA-Public Use
  Company Number: US-FRESENIUS MEDICAL CARE RENAL THERAPIES GROUP-FMC-2108-001284

PATIENT
  Age: 74 Year
  Sex: Female
  Weight: 68 kg

DRUGS (1)
  1. DELFLEX WITH DEXTROSE 1.5% LOW MAGNESIUM LOW CALCIUM [Suspect]
     Active Substance: CALCIUM CHLORIDE\DEXTROSE\MAGNESIUM CHLORIDE\SODIUM CHLORIDE\SODIUM LACTATE
     Indication: END STAGE RENAL DISEASE
     Dosage: DELFLEX AT 2000 ML FOR 4 CYCLES WITH A LAST FILL OF 200 ML AND NO DAYTIME EXCHANGE.
     Route: 033

REACTIONS (1)
  - Peritonitis [Recovering/Resolving]
